FAERS Safety Report 14109887 (Version 2)
Quarter: 2017Q4

REPORT INFORMATION
  Report Type: Spontaneous
  Country: US (occurrence: US)
  Receive Date: 20171020
  Receipt Date: 20171123
  Transmission Date: 20180321
  Serious: No
  Sender: FDA-Public Use
  Company Number: PHEH2017US032912

PATIENT
  Sex: Male

DRUGS (1)
  1. NATACYN [Suspect]
     Active Substance: NATAMYCIN
     Indication: PRODUCT USED FOR UNKNOWN INDICATION
     Route: 047

REACTIONS (2)
  - Medication residue present [Unknown]
  - Liquid product physical issue [Unknown]
